FAERS Safety Report 12361292 (Version 1)
Quarter: 2016Q2

REPORT INFORMATION
  Report Type: Spontaneous
  Country: US (occurrence: US)
  Receive Date: 20160512
  Receipt Date: 20160512
  Transmission Date: 20160815
  Serious: No
  Sender: FDA-Public Use
  Company Number: US-UCBSA-2015029492

PATIENT
  Age: 19 Year
  Sex: Female

DRUGS (2)
  1. CIMZIA [Suspect]
     Active Substance: CERTOLIZUMAB PEGOL
     Indication: CROHN^S DISEASE
     Dosage: 400 MG, EV 4 WEEKS
     Dates: start: 201410
  2. CIMZIA [Suspect]
     Active Substance: CERTOLIZUMAB PEGOL
     Dosage: 400 MG, EV 2 WEEKS(QOW)
     Route: 058
     Dates: start: 20150925

REACTIONS (6)
  - Anxiety [Not Recovered/Not Resolved]
  - Off label use [Unknown]
  - Respiratory tract congestion [Not Recovered/Not Resolved]
  - Injection site pain [Not Recovered/Not Resolved]
  - Nasal congestion [Not Recovered/Not Resolved]
  - Needle issue [Unknown]

NARRATIVE: CASE EVENT DATE: 201410
